FAERS Safety Report 7095764-5 (Version None)
Quarter: 2010Q4

REPORT INFORMATION
  Report Type: 
  Country: None (occurrence: None)
  Receive Date: 20101111
  Receipt Date: 20101028
  Transmission Date: 20110411
  Serious: Yes (Death, Life-Threatening, Hospitalization)
  Sender: FDA-Public Use
  Company Number: ES-ALEXION PHARMACEUTICALS INC.-A201001314

PATIENT

DRUGS (8)
  1. SOLIRIS [Suspect]
     Indication: PAROXYSMAL NOCTURNAL HAEMOGLOBINURIA
     Dosage: 600 MG, QW
     Route: 042
     Dates: start: 20080301
  2. SOLIRIS [Suspect]
     Dosage: 900 MG, Q2W
     Route: 042
     Dates: end: 20101001
  3. PARACETAMOL [Concomitant]
     Dosage: 1 G, QD
  4. ANTICOAGULANT [Concomitant]
  5. DEFERASIROX [Concomitant]
     Indication: HAEMOCHROMATOSIS
     Dosage: 500 MG, QD
     Dates: start: 20090301
  6. PREDNISONE [Concomitant]
     Indication: RHEUMATOID ARTHRITIS
     Dosage: 10 MG, QD
  7. ANTIHYPERTENSIVES [Concomitant]
  8. CALCIUM [Concomitant]

REACTIONS (3)
  - HEPATIC ENCEPHALOPATHY [None]
  - HEPATITIS TOXIC [None]
  - MULTI-ORGAN FAILURE [None]
